FAERS Safety Report 13161404 (Version 2)
Quarter: 2017Q1

REPORT INFORMATION
  Report Type: Report from Study
  Country: US (occurrence: US)
  Receive Date: 20170130
  Receipt Date: 20170321
  Transmission Date: 20170428
  Serious: Yes (Other)
  Sender: FDA-Public Use
  Company Number: US-AMGEN-USASL2017012341

PATIENT
  Age: 69 Year
  Sex: Male

DRUGS (1)
  1. REPATHA [Suspect]
     Active Substance: EVOLOCUMAB
     Indication: BLOOD CHOLESTEROL INCREASED
     Dosage: 140 MG, Q2WK (TWICE MONTLY)
     Route: 065
     Dates: start: 201604

REACTIONS (12)
  - Malaise [Unknown]
  - Fatigue [Unknown]
  - Dyspnoea [Unknown]
  - Tendon disorder [Unknown]
  - Sputum discoloured [Unknown]
  - Memory impairment [Unknown]
  - Cough [Unknown]
  - Rhinorrhoea [Unknown]
  - Hypoacusis [Unknown]
  - Amnesia [Not Recovered/Not Resolved]
  - Arthralgia [Unknown]
  - Somnolence [Unknown]

NARRATIVE: CASE EVENT DATE: 201607
